FAERS Safety Report 6780112-8 (Version None)
Quarter: 2010Q2

REPORT INFORMATION
  Report Type: 
  Country: None (occurrence: None)
  Receive Date: 20100618
  Receipt Date: 20100607
  Transmission Date: 20101027
  Serious: No
  Sender: FDA-Public Use
  Company Number: US-TEVA-238000USA

PATIENT
  Sex: Male
  Weight: 56.75 kg

DRUGS (2)
  1. SALBUTAMOL SULFATE INHALATION, 0.09 MG [Suspect]
     Indication: UPPER RESPIRATORY TRACT CONGESTION
     Route: 055
     Dates: start: 20100605, end: 20100607
  2. FLUTICASONE PROPIONATE [Concomitant]

REACTIONS (1)
  - DELUSION [None]
